FAERS Safety Report 10072698 (Version 1)
Quarter: 2014Q2

REPORT INFORMATION
  Report Type: Spontaneous
  Country: GB (occurrence: None)
  Receive Date: 20140409
  Receipt Date: 20140409
  Transmission Date: 20141212
  Serious: Yes (Other)
  Sender: FDA-Public Use
  Company Number: GB-DEXPHARM-20140164

PATIENT
  Age: 40 Year
  Sex: Male

DRUGS (2)
  1. DICLOFENAC [Suspect]
     Indication: PSORIATIC ARTHROPATHY
  2. PARACETAMOL [Suspect]

REACTIONS (3)
  - Pseudoporphyria [None]
  - Drug ineffective [None]
  - Liver function test abnormal [None]
